FAERS Safety Report 8986703 (Version 1)
Quarter: 2012Q4

REPORT INFORMATION
  Report Type: Report from Study
  Country: SE (occurrence: SE)
  Receive Date: 20121226
  Receipt Date: 20121226
  Transmission Date: 20130627
  Serious: Yes (Other)
  Sender: FDA-Public Use
  Company Number: SE-ROCHE-1163298

PATIENT
  Age: 88 Year
  Sex: Female

DRUGS (7)
  1. RANIBIZUMAB [Suspect]
     Indication: RETINAL NEOVASCULARISATION
     Route: 050
     Dates: start: 20120312
  2. CLOPIDOGREL [Concomitant]
     Route: 065
     Dates: start: 20120804
  3. TROMBYL [Concomitant]
     Route: 065
     Dates: start: 20100908
  4. IMDUR [Concomitant]
     Route: 065
     Dates: start: 20120815
  5. FURIX [Concomitant]
     Route: 065
     Dates: start: 20100906
  6. LOSARTAN [Concomitant]
     Route: 065
     Dates: start: 20121120
  7. ALVEDON [Concomitant]
     Route: 065
     Dates: start: 20120814

REACTIONS (3)
  - Vitreous detachment [Recovered/Resolved]
  - Conjunctival haemorrhage [Recovered/Resolved]
  - Visual acuity reduced [Recovered/Resolved]
